FAERS Safety Report 21700288 (Version 8)
Quarter: 2023Q1

REPORT INFORMATION
  Report Type: Report from Study
  Country: DE (occurrence: DE)
  Receive Date: 20221208
  Receipt Date: 20230112
  Transmission Date: 20230418
  Serious: Yes (Life-Threatening, Hospitalization, Other)
  Sender: FDA-Public Use
  Company Number: DE-PFM-2022-08482

PATIENT
  Age: 59 Year
  Sex: Male
  Weight: 90 kg

DRUGS (7)
  1. BRAFTOVI [Suspect]
     Active Substance: ENCORAFENIB
     Indication: Colorectal cancer
     Dosage: 300 MG/DAY
     Route: 048
     Dates: start: 20220805
  2. CETUXIMAB [Suspect]
     Active Substance: CETUXIMAB
     Indication: Colorectal cancer
     Dosage: 147 MG/M2, WEEKLY
     Route: 042
     Dates: start: 20220805
  3. CETUXIMAB [Suspect]
     Active Substance: CETUXIMAB
     Dosage: 250 MG/M2, WEEKLY
     Route: 042
     Dates: start: 20220805
  4. CETUXIMAB [Suspect]
     Active Substance: CETUXIMAB
     Dosage: UNK
     Dates: start: 20220806
  5. CETUXIMAB [Suspect]
     Active Substance: CETUXIMAB
     Dosage: 250 MG/M2, WEEKLY
     Route: 042
     Dates: start: 20220815
  6. CETUXIMAB [Suspect]
     Active Substance: CETUXIMAB
     Dosage: 71 MG/M2, WEEKLY
     Route: 042
     Dates: start: 20220815
  7. CETUXIMAB [Suspect]
     Active Substance: CETUXIMAB
     Dosage: 329 MG/M2, WEEKLY
     Route: 042
     Dates: start: 20220815

REACTIONS (5)
  - Pneumonia [Recovered/Resolved]
  - Ileus [Recovered/Resolved]
  - Diarrhoea [Recovered/Resolved]
  - Hypersensitivity [Recovered/Resolved]
  - Pyrexia [Recovered/Resolved]

NARRATIVE: CASE EVENT DATE: 20220801
